FAERS Safety Report 7623829-5 (Version None)
Quarter: 2011Q3

REPORT INFORMATION
  Report Type: 
  Country: None (occurrence: None)
  Receive Date: 20110720
  Receipt Date: 20110719
  Transmission Date: 20111222
  Serious: No
  Sender: FDA-Public Use
  Company Number: US-PFIZER INC-2011163665

PATIENT
  Sex: Female
  Weight: 97.506 kg

DRUGS (13)
  1. SINEMET [Concomitant]
     Indication: RESTLESS LEGS SYNDROME
     Dosage: 25/100 MG, UNK
     Route: 048
  2. ADVAIR DISKUS 100/50 [Concomitant]
     Indication: ASTHMA
     Dosage: 500/50 MG, UNK
     Route: 048
  3. HYDROCHLOROTHIAZIDE [Concomitant]
     Indication: HYPERTENSION
     Dosage: 25 MG, DAILY
     Route: 048
     Dates: end: 20110701
  4. VENTOLIN HFA [Concomitant]
     Indication: ASTHMA
     Dosage: UNK
  5. ASCORBIC ACID [Concomitant]
     Indication: VITAMIN SUPPLEMENTATION
     Dosage: UNK
  6. MULTI-VITAMINS [Concomitant]
     Indication: SUPPLEMENTATION THERAPY
     Dosage: UNK
  7. IRON [Concomitant]
     Indication: MINERAL SUPPLEMENTATION
     Dosage: UNK
  8. LORTAB [Concomitant]
     Indication: BACK PAIN
     Dosage: 10 MG, 6X/DAY
     Route: 048
  9. CHANTIX [Suspect]
     Indication: SMOKING CESSATION THERAPY
     Dosage: 0.5 MG, DAILY
     Route: 048
     Dates: start: 20110713, end: 20110718
  10. POTASSIUM [Concomitant]
     Indication: MINERAL SUPPLEMENTATION
     Dosage: UNK
  11. VITAMIN D [Concomitant]
     Indication: VITAMIN SUPPLEMENTATION
     Dosage: UNK
  12. PAXIL [Concomitant]
     Indication: DEPRESSION
     Dosage: 60 MG, DAILY
     Route: 048
  13. VITAMIN E [Concomitant]
     Indication: VITAMIN SUPPLEMENTATION
     Dosage: UNK

REACTIONS (1)
  - RASH PRURITIC [None]
